FAERS Safety Report 5781226-1 (Version None)
Quarter: 2008Q2

REPORT INFORMATION
  Report Type: 
  Country: None (occurrence: None)
  Receive Date: 20080618
  Receipt Date: 20080609
  Transmission Date: 20081010
  Serious: Yes (Hospitalization)
  Sender: FDA-Public Use
  Company Number: S08-USA-01497-01

PATIENT
  Sex: Male

DRUGS (15)
  1. CELEXA [Suspect]
     Indication: ANXIETY
     Dosage: 20 MG QD PO
     Route: 048
     Dates: start: 20040101
  2. CELEXA [Suspect]
     Indication: DEPRESSION
     Dosage: 20 MG QD PO
     Route: 048
     Dates: start: 20040101
  3. CELEXA [Suspect]
     Indication: ANXIETY
     Dosage: 40 MG QD PO
     Route: 048
     Dates: start: 20040101, end: 20040101
  4. CELEXA [Suspect]
     Indication: DEPRESSION
     Dosage: 40 MG QD PO
     Route: 048
     Dates: start: 20040101, end: 20040101
  5. CELEXA [Suspect]
     Indication: ANXIETY
     Dosage: 20 MG QD PO
     Route: 048
     Dates: start: 20040101, end: 20080101
  6. CELEXA [Suspect]
     Indication: DEPRESSION
     Dosage: 20 MG QD PO
     Route: 048
     Dates: start: 20040101, end: 20080101
  7. CELEXA [Suspect]
     Indication: ANXIETY
     Dosage: 20 MG QOD PO
     Route: 048
     Dates: start: 20080101, end: 20080101
  8. CELEXA [Suspect]
     Indication: DEPRESSION
     Dosage: 20 MG QOD PO
     Route: 048
     Dates: start: 20080101, end: 20080101
  9. CELEXA [Suspect]
     Indication: ANXIETY
     Dosage: 10 MG QOD PO
     Route: 048
     Dates: start: 20080101, end: 20080101
  10. CELEXA [Suspect]
     Indication: DEPRESSION
     Dosage: 10 MG QOD PO
     Route: 048
     Dates: start: 20080101, end: 20080101
  11. CELEXA [Suspect]
     Indication: ANXIETY
     Dosage: 10 MG QD PO
     Route: 048
     Dates: start: 20010101
  12. CELEXA [Suspect]
     Indication: DEPRESSION
     Dosage: 10 MG QD PO
     Route: 048
     Dates: start: 20010101
  13. CELEXA [Suspect]
     Indication: ANXIETY
     Dosage: 20 MG QD PO
     Route: 048
     Dates: start: 20080101, end: 20080507
  14. CELEXA [Suspect]
     Indication: DEPRESSION
     Dosage: 20 MG QD PO
     Route: 048
     Dates: start: 20080101, end: 20080507
  15. ROZEREM [Concomitant]

REACTIONS (7)
  - FALL [None]
  - FORMICATION [None]
  - INFLUENZA LIKE ILLNESS [None]
  - JOINT INJURY [None]
  - OSTEOARTHRITIS [None]
  - PAIN [None]
  - TREATMENT NONCOMPLIANCE [None]
